FAERS Safety Report 20729596 (Version 20)
Quarter: 2023Q2

REPORT INFORMATION
  Report Type: Report from Study
  Country: CL (occurrence: None)
  Receive Date: 20220420
  Receipt Date: 20230403
  Transmission Date: 20230721
  Serious: Yes (Hospitalization)
  Sender: FDA-Public Use
  Company Number: CL-Eisai Medical Research-EC-2022-113158

PATIENT
  Age: 50 Year
  Sex: Female
  Weight: 69 kg

DRUGS (15)
  1. LENVATINIB [Suspect]
     Active Substance: LENVATINIB
     Indication: Clear cell renal cell carcinoma
     Dosage: (DOSAGE FLUCTUATED)
     Route: 048
     Dates: start: 20210702, end: 20220412
  2. LENVATINIB [Suspect]
     Active Substance: LENVATINIB
     Route: 048
     Dates: start: 20220421, end: 20220602
  3. PEMBROLIZUMAB [Suspect]
     Active Substance: PEMBROLIZUMAB
     Indication: Clear cell renal cell carcinoma
     Route: 041
     Dates: start: 20210702, end: 20211105
  4. BELZUTIFAN [Suspect]
     Active Substance: BELZUTIFAN
     Indication: Clear cell renal cell carcinoma
     Dosage: STARTING DOSE AT 120 MG; FLUCTUATED DOSAGE
     Route: 048
     Dates: start: 20210702, end: 20211226
  5. SULFAMETHOXAZOLE\TRIMETHOPRIM [Concomitant]
     Active Substance: SULFAMETHOXAZOLE\TRIMETHOPRIM
     Dates: start: 20220110, end: 20220602
  6. OMEPRAZOLE [Concomitant]
     Active Substance: OMEPRAZOLE
     Dates: start: 20220117, end: 202206
  7. METOCLOPRAMIDE [Concomitant]
     Active Substance: METOCLOPRAMIDE
     Dates: start: 20220117, end: 20220413
  8. NYSTATIN [Concomitant]
     Active Substance: NYSTATIN
     Dates: start: 20220210, end: 20220413
  9. LEVOTHYROXINE SODIUM [Concomitant]
     Active Substance: LEVOTHYROXINE SODIUM
     Dates: start: 20220210
  10. GABAPENTIN [Concomitant]
     Active Substance: GABAPENTIN
     Dates: start: 20220222, end: 202206
  11. ORAMORPH SR SUSTAINED RELEASE [Concomitant]
     Active Substance: MORPHINE SULFATE
     Dates: start: 20220228, end: 20220602
  12. FENTANYL [Concomitant]
     Active Substance: FENTANYL
     Dates: start: 20220301, end: 20220602
  13. GELCLAIR [ENOXOLONE;HYALURONATE SODIUM;POVIDONE] [Concomitant]
     Dates: start: 20220303, end: 20220413
  14. PREDNISONE [Concomitant]
     Active Substance: PREDNISONE
     Dates: start: 20220310, end: 20220412
  15. LOSARTAN [Concomitant]
     Active Substance: LOSARTAN
     Dates: start: 20220328, end: 20220411

REACTIONS (1)
  - Hypertension [Not Recovered/Not Resolved]

NARRATIVE: CASE EVENT DATE: 20220404
